FAERS Safety Report 20894916 (Version 1)
Quarter: 2022Q2

REPORT INFORMATION
  Report Type: Spontaneous
  Country: US (occurrence: None)
  Receive Date: 20220527
  Receipt Date: 20220527
  Transmission Date: 20220720
  Serious: Yes (Other)
  Sender: FDA-Public Use
  Company Number: None

PATIENT
  Age: 53 Year
  Sex: Female
  Weight: 97.7 kg

DRUGS (1)
  1. PRALUENT [Suspect]
     Active Substance: ALIROCUMAB

REACTIONS (7)
  - Systemic lupus erythematosus [None]
  - Rheumatoid arthritis [None]
  - Hidradenitis [None]
  - Herpes simplex [None]
  - Swelling of eyelid [None]
  - Pain [None]
  - Stomatitis [None]

NARRATIVE: CASE EVENT DATE: 20220505
